FAERS Safety Report 17345650 (Version 1)
Quarter: 2020Q1

REPORT INFORMATION
  Report Type: Spontaneous
  Country: US (occurrence: US)
  Receive Date: 20200129
  Receipt Date: 20200129
  Transmission Date: 20200409
  Serious: No
  Sender: FDA-Public Use
  Company Number: US-TEVA-2020-US-1175982

PATIENT
  Sex: Female
  Weight: 158.8 kg

DRUGS (1)
  1. CINQAIR [Suspect]
     Active Substance: RESLIZUMAB
     Indication: ASTHMA
     Dosage: 17.8571 MILLIGRAM DAILY; 500 MG EVERY 4 WEEKS
     Dates: start: 20191218

REACTIONS (1)
  - Myalgia [Unknown]
